FAERS Safety Report 21992558 (Version 1)
Quarter: 2023Q1

REPORT INFORMATION
  Report Type: Other
  Country: CN (occurrence: None)
  Receive Date: 20230215
  Receipt Date: 20230215
  Transmission Date: 20230417
  Serious: Yes (Other)
  Sender: FDA-Public Use
  Company Number: CN-ROCHE-3284075

PATIENT
  Age: 49 Year
  Sex: Male

DRUGS (13)
  1. CAPECITABINE [Suspect]
     Active Substance: CAPECITABINE
     Indication: Colorectal cancer metastatic
     Dosage: 4 CYCLES
     Route: 065
     Dates: start: 201812, end: 201905
  2. OXALIPLATIN [Suspect]
     Active Substance: OXALIPLATIN
     Indication: Colorectal cancer metastatic
     Dosage: 4 CYCLES
     Route: 065
     Dates: start: 201812, end: 201905
  3. BEVACIZUMAB [Suspect]
     Active Substance: BEVACIZUMAB
     Indication: Colorectal cancer metastatic
     Dosage: TOTAL 3 CYCLES
     Route: 065
     Dates: start: 201903, end: 201905
  4. BEVACIZUMAB [Suspect]
     Active Substance: BEVACIZUMAB
     Dosage: 12 CYCLES
     Route: 065
     Dates: start: 201910, end: 202012
  5. IRINOTECAN [Suspect]
     Active Substance: IRINOTECAN
     Indication: Colorectal cancer metastatic
     Dosage: 12 CYCLES
     Route: 065
     Dates: start: 201910, end: 202012
  6. LEUCOVORIN CALCIUM [Suspect]
     Active Substance: LEUCOVORIN CALCIUM
     Indication: Colorectal cancer metastatic
     Dosage: 12 CYCLES
     Route: 065
     Dates: start: 201910, end: 202012
  7. FLUOROURACIL [Suspect]
     Active Substance: FLUOROURACIL
     Indication: Colorectal cancer metastatic
     Dosage: 12 CYCLES
     Route: 065
     Dates: start: 201910, end: 202012
  8. NIVOLUMAB [Concomitant]
     Active Substance: NIVOLUMAB
     Indication: Colorectal cancer metastatic
     Dosage: 4 CYCLES
     Dates: start: 202103, end: 202105
  9. REGORAFENIB [Concomitant]
     Active Substance: REGORAFENIB
     Indication: Colorectal cancer metastatic
     Dosage: 4 CYCLES
     Dates: start: 202103, end: 202105
  10. DIQUAFOSOL [Concomitant]
     Active Substance: DIQUAFOSOL
  11. BOVINE BASIC FIBROBLAST GROWTH FACTOR [Concomitant]
  12. LEVOFLOXACIN [Concomitant]
     Active Substance: LEVOFLOXACIN
  13. TOBRAMYCIN AND DEXAMETHASONE [Concomitant]
     Active Substance: DEXAMETHASONE\TOBRAMYCIN

REACTIONS (3)
  - Myelosuppression [Unknown]
  - Disease progression [Unknown]
  - Metastases to lung [Unknown]
